FAERS Safety Report 7994891-5 (Version None)
Quarter: 2011Q4

REPORT INFORMATION
  Report Type: 
  Country: None (occurrence: None)
  Receive Date: 20111220
  Receipt Date: 20111212
  Transmission Date: 20120403
  Serious: Yes (Hospitalization, Other)
  Sender: FDA-Public Use
  Company Number: US-ROCHE-793985

PATIENT
  Sex: Female
  Weight: 61.29 kg

DRUGS (2)
  1. BIRTH CONTROL PILLS (UNK INGREDIENTS) [Concomitant]
  2. ACCUTANE [Suspect]
     Indication: ACNE
     Route: 065
     Dates: start: 20020101, end: 20030101

REACTIONS (7)
  - THYROID DISORDER [None]
  - COAGULOPATHY [None]
  - BLOOD CHOLESTEROL INCREASED [None]
  - HAEMORRHOIDS [None]
  - COLITIS ULCERATIVE [None]
  - MUSCLE STRAIN [None]
  - INFLAMMATORY BOWEL DISEASE [None]
